FAERS Safety Report 11888051 (Version 1)
Quarter: 2016Q1

REPORT INFORMATION
  Report Type: Spontaneous
  Country: US (occurrence: None)
  Receive Date: 20160104
  Receipt Date: 20160104
  Transmission Date: 20160526
  Serious: Yes (Life-Threatening)
  Sender: FDA-Public Use
  Company Number: None

PATIENT
  Age: 18 Year
  Sex: Female
  Weight: 52.16 kg

DRUGS (2)
  1. SERTRALINE HYDROCHLORIDE 50MG WALMART [Suspect]
     Active Substance: SERTRALINE HYDROCHLORIDE
     Indication: DEPRESSION
     Dosage: 1/2 PILL
     Route: 048
     Dates: start: 20151223, end: 20151226
  2. TRAZODONE [Concomitant]
     Active Substance: TRAZODONE HYDROCHLORIDE

REACTIONS (5)
  - Abnormal behaviour [None]
  - Aggression [None]
  - Eye disorder [None]
  - Self-injurious ideation [None]
  - Thinking abnormal [None]

NARRATIVE: CASE EVENT DATE: 20151227
